FAERS Safety Report 26019587 (Version 1)
Quarter: 2025Q4

REPORT INFORMATION
  Report Type: Spontaneous
  Country: US (occurrence: US)
  Receive Date: 20251110
  Receipt Date: 20251110
  Transmission Date: 20260118
  Serious: Yes (Hospitalization)
  Sender: INSMED
  Company Number: US-INSMED, INC.-2025-05994-US

PATIENT
  Sex: Male

DRUGS (2)
  1. BRINSUPRI [Suspect]
     Active Substance: BRENSOCATIB
     Indication: Bronchiectasis
     Dosage: 10 MILLIGRAM, QD
     Route: 048
     Dates: start: 20251001
  2. BRINSUPRI [Suspect]
     Active Substance: BRENSOCATIB
     Indication: Lower respiratory tract infection

REACTIONS (1)
  - Hospitalisation [Unknown]
